FAERS Safety Report 8297909-8 (Version None)
Quarter: 2012Q2

REPORT INFORMATION
  Report Type: 
  Country: None (occurrence: None)
  Receive Date: 20120419
  Receipt Date: 20120409
  Transmission Date: 20120825
  Serious: Yes (Hospitalization, Other)
  Sender: FDA-Public Use
  Company Number: PHHY2012MX022579

PATIENT
  Sex: Female

DRUGS (2)
  1. EXFORGE HCT [Suspect]
     Indication: HYPERTENSION
     Dosage: 1 DF X (160/5/12.5 MG), UNK
  2. METOPROLOL TARTRATE [Concomitant]
     Indication: DIURETIC THERAPY
     Dosage: 0.25 DF, DAILY

REACTIONS (7)
  - OCULAR HYPERTENSION [None]
  - CATARACT [None]
  - VISION BLURRED [None]
  - HEADACHE [None]
  - ERYTHROPSIA [None]
  - OCULAR HYPERAEMIA [None]
  - EYE SWELLING [None]
